FAERS Safety Report 25660757 (Version 1)
Quarter: 2025Q3

REPORT INFORMATION
  Report Type: Spontaneous
  Country: EU (occurrence: EU)
  Receive Date: 20250808
  Receipt Date: 20250808
  Transmission Date: 20251021
  Serious: Yes (Death)
  Sender: RANBAXY
  Company Number: EU-SUN PHARMACEUTICAL INDUSTRIES LTD-2025RR-520931

PATIENT
  Age: 98 Year
  Sex: Female
  Weight: 52.6 kg

DRUGS (7)
  1. RAMIPRIL [Suspect]
     Active Substance: RAMIPRIL
     Indication: Wrong patient received product
     Dosage: 5 MG SINGLE DOSE
     Route: 048
     Dates: start: 20250320, end: 20250320
  2. PANTOPRAZOLE [Suspect]
     Active Substance: PANTOPRAZOLE
     Indication: Wrong patient received product
     Dosage: 20 MG SINGLE DOSE
     Route: 048
     Dates: start: 20250320, end: 20250320
  3. REPAGLINIDE [Suspect]
     Active Substance: REPAGLINIDE
     Indication: Wrong patient received product
     Dosage: 1 MG SINGLE DOSE
     Route: 048
     Dates: start: 20250320, end: 20250320
  4. GABAPENTIN [Suspect]
     Active Substance: GABAPENTIN
     Indication: Wrong patient received product
     Dosage: 100 MG SINGLE DOSE
     Route: 048
     Dates: start: 20250320, end: 20250320
  5. ELIQUIS [Suspect]
     Active Substance: APIXABAN
     Indication: Wrong patient received product
     Dosage: 5 MG SINGLE DOSE
     Route: 048
     Dates: start: 20250320, end: 20250320
  6. OXAZEPAM [Suspect]
     Active Substance: OXAZEPAM
     Indication: Wrong patient received product
     Dosage: 25 MG SINGLE DOSE
     Route: 048
     Dates: start: 20250320, end: 20250320
  7. DAFALGAN [Suspect]
     Active Substance: ACETAMINOPHEN
     Indication: Wrong patient received product
     Dosage: 1 GR SINGLE DOSE
     Route: 048
     Dates: start: 20250320, end: 20250320

REACTIONS (4)
  - Hypotension [Fatal]
  - Hypothermia [Fatal]
  - Faecal vomiting [Fatal]
  - Wrong patient received product [Fatal]

NARRATIVE: CASE EVENT DATE: 20250320
